FAERS Safety Report 5105431-2 (Version None)
Quarter: 2006Q3

REPORT INFORMATION
  Report Type: 
  Country: None (occurrence: None)
  Receive Date: 20060915
  Receipt Date: 20060908
  Transmission Date: 20061208
  Serious: Yes (Disabling)
  Sender: FDA-Public Use
  Company Number: 2006AP04248

PATIENT
  Age: 63 Year
  Sex: Male

DRUGS (4)
  1. ARIMIDEX [Suspect]
     Indication: BREAST CANCER MALE
     Route: 048
     Dates: start: 20040101, end: 20060907
  2. XELODA [Suspect]
     Indication: BREAST CANCER MALE
     Route: 048
     Dates: start: 20060420, end: 20060907
  3. ZYLORIC [Concomitant]
     Route: 048
     Dates: end: 20060908
  4. BEZATOL SR [Concomitant]
     Route: 048
     Dates: end: 20060908

REACTIONS (3)
  - BLOOD CHOLESTEROL INCREASED [None]
  - BLOOD TRIGLYCERIDES INCREASED [None]
  - LIPID METABOLISM DISORDER [None]
